FAERS Safety Report 17293503 (Version 1)
Quarter: 2020Q1

REPORT INFORMATION
  Report Type: Spontaneous
  Country: JP (occurrence: JP)
  Receive Date: 20200121
  Receipt Date: 20200121
  Transmission Date: 20200409
  Serious: Yes (Death)
  Sender: FDA-Public Use
  Company Number: JP-REGENERON PHARMACEUTICALS, INC.-2020-13472

PATIENT

DRUGS (3)
  1. EYLEA [Suspect]
     Active Substance: AFLIBERCEPT
     Indication: DIABETIC RETINAL OEDEMA
     Dosage: 0.05ML, LEFT EYE
     Route: 031
     Dates: start: 20190416, end: 20190416
  2. EYLEA [Suspect]
     Active Substance: AFLIBERCEPT
     Dosage: 0.05ML, BOTH EYES
     Route: 031
     Dates: start: 20190527, end: 20190527
  3. EYLEA [Suspect]
     Active Substance: AFLIBERCEPT
     Dosage: 0.05ML, BOTH EYES
     Route: 031
     Dates: start: 20190919, end: 20190919

REACTIONS (1)
  - Thrombotic cerebral infarction [Fatal]

NARRATIVE: CASE EVENT DATE: 20191216
